FAERS Safety Report 7293659-5 (Version None)
Quarter: 2011Q1

REPORT INFORMATION
  Report Type: 
  Country: None (occurrence: None)
  Receive Date: 20110215
  Receipt Date: 20110203
  Transmission Date: 20110831
  Serious: Yes (Other)
  Sender: FDA-Public Use
  Company Number: B0550101A

PATIENT
  Age: 39 Year
  Sex: Female

DRUGS (6)
  1. VIREAD [Suspect]
     Indication: HIV INFECTION
     Dosage: 300MG PER DAY
     Route: 048
     Dates: start: 20051025, end: 20070626
  2. KALETRA [Suspect]
     Indication: HIV INFECTION
     Route: 048
     Dates: start: 20051025, end: 20061114
  3. NEVIRAPINE [Suspect]
     Indication: HIV INFECTION
     Dates: start: 20080101, end: 20080101
  4. ALLELOCK [Concomitant]
     Indication: PRURITUS
     Dosage: 5MG PER DAY
     Route: 048
     Dates: start: 20051108, end: 20070626
  5. EPIVIR [Suspect]
     Indication: HIV INFECTION
     Dosage: 300MG PER DAY
     Route: 048
     Dates: start: 20051025
  6. RETROVIR [Suspect]
     Indication: HIV INFECTION
     Dates: start: 20080101

REACTIONS (7)
  - GAIT SPASTIC [None]
  - RASH [None]
  - FALL [None]
  - HYPERREFLEXIA [None]
  - CONTUSION [None]
  - PYREXIA [None]
  - LIMB DISCOMFORT [None]
